FAERS Safety Report 16848182 (Version 1)
Quarter: 2019Q3

REPORT INFORMATION
  Report Type: Spontaneous
  Country: US (occurrence: US)
  Receive Date: 20190925
  Receipt Date: 20190925
  Transmission Date: 20191005
  Serious: No
  Sender: FDA-Public Use
  Company Number: US-ELI_LILLY_AND_COMPANY-US201909008248

PATIENT
  Sex: Male

DRUGS (1)
  1. HUMALOG MIX75/25 [Suspect]
     Active Substance: INSULIN LISPRO
     Indication: TYPE 2 DIABETES MELLITUS
     Dosage: UNK, OTHER (WITH MEALS)
     Route: 065
     Dates: start: 1999

REACTIONS (8)
  - Hypoacusis [Unknown]
  - Night sweats [Unknown]
  - Product storage error [Unknown]
  - Productive cough [Unknown]
  - Hypoglycaemia [Unknown]
  - Incorrect product administration duration [Unknown]
  - Gastrooesophageal reflux disease [Recovered/Resolved]
  - Glycosylated haemoglobin increased [Unknown]
